FAERS Safety Report 7209737-2 (Version None)
Quarter: 2011Q1

REPORT INFORMATION
  Report Type: 
  Country: None (occurrence: None)
  Receive Date: 20110104
  Receipt Date: 20101222
  Transmission Date: 20110831
  Serious: Yes (Death)
  Sender: FDA-Public Use
  Company Number: CA-MYLANLABS-2010S1023613

PATIENT
  Sex: Female

DRUGS (7)
  1. NORTRIPTYLINE [Suspect]
     Route: 065
  2. LOXAPINE [Concomitant]
     Route: 065
  3. OLANZAPINE [Concomitant]
     Indication: PSYCHOTIC DISORDER
     Route: 065
  4. DIPHENHYDRAMINE [Concomitant]
     Route: 065
  5. RISPERIDONE [Suspect]
     Dosage: IN THE MORNING.
     Route: 065
  6. RISPERIDONE [Suspect]
     Indication: PSYCHOTIC DISORDER
     Dosage: 1MG MORNING AND 2MG EVENING
     Route: 065
  7. VENLAFAXINE [Concomitant]
     Route: 065

REACTIONS (4)
  - PULMONARY EMBOLISM [None]
  - WEIGHT INCREASED [None]
  - AMENORRHOEA [None]
  - HYPERPROLACTINAEMIA [None]
